FAERS Safety Report 8503036-4 (Version None)
Quarter: 2012Q3

REPORT INFORMATION
  Report Type: 
  Country: None (occurrence: None)
  Receive Date: 20120705
  Receipt Date: 20120705
  Transmission Date: 20120928
  Serious: Yes (Life-Threatening, Hospitalization, Disabling)
  Sender: FDA-Public Use
  Company Number: None

PATIENT
  Age: 55 Year
  Sex: Female
  Weight: 111.5849 kg

DRUGS (1)
  1. CYMBALTA CYMBALTA 20 MG LILLY [Suspect]
     Indication: MYALGIA
     Dosage: 20MG QD PO
     Route: 048
     Dates: start: 20120304, end: 20120420

REACTIONS (17)
  - WEIGHT DECREASED [None]
  - CHEST DISCOMFORT [None]
  - BLOOD POTASSIUM DECREASED [None]
  - TREMOR [None]
  - SUPRAVENTRICULAR EXTRASYSTOLES [None]
  - VENTRICULAR EXTRASYSTOLES [None]
  - MALAISE [None]
  - SCAN ABDOMEN ABNORMAL [None]
  - CHILLS [None]
  - INSOMNIA [None]
  - HELICOBACTER TEST POSITIVE [None]
  - PAIN [None]
  - MOOD ALTERED [None]
  - ABDOMINAL PAIN [None]
  - IMPAIRED SELF-CARE [None]
  - PALPITATIONS [None]
  - DIARRHOEA [None]
